FAERS Safety Report 24391931 (Version 1)
Quarter: 2024Q4

REPORT INFORMATION
  Report Type: Spontaneous
  Country: US (occurrence: None)
  Receive Date: 20241002
  Receipt Date: 20241002
  Transmission Date: 20250115
  Serious: Yes (Life-Threatening, Hospitalization)
  Sender: Public
  Company Number: None

PATIENT
  Age: 69 Year
  Sex: Male
  Weight: 75 kg

DRUGS (2)
  1. HEPARIN SODIUM [Suspect]
     Active Substance: HEPARIN SODIUM
     Indication: Pulmonary embolism
     Route: 042
     Dates: start: 20240316, end: 20240319
  2. APIXABAN [Suspect]
     Active Substance: APIXABAN

REACTIONS (7)
  - Anaemia [None]
  - Therapy interrupted [None]
  - Hypotension [None]
  - Nausea [None]
  - Vomiting [None]
  - Renal haematoma [None]
  - Haemorrhage [None]

NARRATIVE: CASE EVENT DATE: 20240319
